FAERS Safety Report 14546844 (Version 10)
Quarter: 2022Q4

REPORT INFORMATION
  Report Type: Spontaneous
  Country: US (occurrence: US)
  Receive Date: 20180219
  Receipt Date: 20221223
  Transmission Date: 20230112
  Serious: Yes (Other)
  Sender: FDA-Public Use
  Company Number: US-PFIZER INC-2018065235

PATIENT
  Age: 73 Year
  Sex: Female
  Weight: 77 kg

DRUGS (5)
  1. PROCARDIA XL [Suspect]
     Active Substance: NIFEDIPINE
     Indication: Cardiac disorder
     Dosage: 30 MG, 1X/DAY
     Route: 048
  2. PROCARDIA XL [Suspect]
     Active Substance: NIFEDIPINE
     Indication: Cerebrovascular accident prophylaxis
  3. ATENOLOL [Concomitant]
     Active Substance: ATENOLOL
     Indication: Blood pressure abnormal
     Dosage: 50 MG, 2X/DAY
     Route: 048
  4. LOSARTAN [Concomitant]
     Active Substance: LOSARTAN
     Indication: Blood pressure abnormal
     Dosage: UNK, 1X/DAY (100-25MG TABLET ONCE DAILY)
     Route: 048
     Dates: start: 2014
  5. LISINOPRIL [Concomitant]
     Active Substance: LISINOPRIL
     Indication: Blood pressure abnormal
     Dosage: 40 MG, 1X/DAY
     Route: 048

REACTIONS (11)
  - Blood pressure increased [Unknown]
  - Intentional product misuse [Unknown]
  - Circumstance or information capable of leading to medication error [Unknown]
  - Asthenia [Unknown]
  - Chest pain [Not Recovered/Not Resolved]
  - Confusional state [Unknown]
  - Depression [Unknown]
  - Gout [Unknown]
  - Malaise [Unknown]
  - Memory impairment [Unknown]
  - Nervousness [Unknown]

NARRATIVE: CASE EVENT DATE: 20180206
